FAERS Safety Report 18233346 (Version 1)
Quarter: 2020Q3

REPORT INFORMATION
  Report Type: Spontaneous
  Country: CA (occurrence: CA)
  Receive Date: 20200904
  Receipt Date: 20200904
  Transmission Date: 20201103
  Serious: Yes (Life-Threatening, Hospitalization)
  Sender: FDA-Public Use
  Company Number: CA-TEVA-2020-CA-1822233

PATIENT
  Age: 77 Year
  Sex: Female
  Weight: 54 kg

DRUGS (19)
  1. OXALIPLATIN. [Suspect]
     Active Substance: OXALIPLATIN
     Indication: PALLIATIVE CARE
  2. CRESTOR [Concomitant]
     Active Substance: ROSUVASTATIN CALCIUM
  3. LEVOTHYROXINE. [Concomitant]
     Active Substance: LEVOTHYROXINE
  4. PANCRELIPASE. [Concomitant]
     Active Substance: PANCRELIPASE
  5. PEG 3350 [Concomitant]
     Active Substance: POLYETHYLENE GLYCOL 3350
  6. SENOKOT [Concomitant]
     Active Substance: SENNOSIDES
  7. LEUCOVORIN CALCIUM INJECTION USP [Suspect]
     Active Substance: LEUCOVORIN CALCIUM
     Route: 065
  8. FLUOROURACIL INJECTION USP [Suspect]
     Active Substance: FLUOROURACIL
     Route: 065
  9. MELATONIN [Concomitant]
     Active Substance: MELATONIN
  10. ONDANSETRON [Concomitant]
     Active Substance: ONDANSETRON
  11. FRAGMIN [Concomitant]
     Active Substance: DALTEPARIN SODIUM
  12. POTASSIUM CHLORIDE. [Concomitant]
     Active Substance: POTASSIUM CHLORIDE
  13. IRINOTECAN HYDROCHLORIDE. [Suspect]
     Active Substance: IRINOTECAN HYDROCHLORIDE
     Route: 065
  14. FRAGMIN [Concomitant]
     Active Substance: DALTEPARIN SODIUM
  15. VANCOMYCIN [Concomitant]
     Active Substance: VANCOMYCIN
  16. OXALIPLATIN. [Suspect]
     Active Substance: OXALIPLATIN
     Indication: PANCREATIC CARCINOMA
     Route: 042
  17. NEUPOGEN [Concomitant]
     Active Substance: FILGRASTIM
  18. ACETAMINOPHEN. [Concomitant]
     Active Substance: ACETAMINOPHEN
  19. BISACODYL. [Concomitant]
     Active Substance: BISACODYL

REACTIONS (1)
  - Febrile neutropenia [Recovering/Resolving]
